FAERS Safety Report 5612164-2 (Version None)
Quarter: 2008Q1

REPORT INFORMATION
  Report Type: 
  Country: None (occurrence: None)
  Receive Date: 20080131
  Receipt Date: 20080131
  Transmission Date: 20080703
  Serious: No
  Sender: FDA-Public Use
  Company Number: None

PATIENT
  Age: 72 Year
  Sex: Female
  Weight: 77.5 kg

DRUGS (2)
  1. LEVAQUIN [Suspect]
     Indication: CHRONIC OBSTRUCTIVE PULMONARY DISEASE
     Dosage: 750MG  Q24HRS  IV (DURATION: ONE DOSE ONLY)
     Route: 042
     Dates: start: 20080112, end: 20080113
  2. LEVAQUIN [Suspect]
     Indication: PNEUMONIA
     Dosage: 750MG  Q24HRS  IV (DURATION: ONE DOSE ONLY)
     Route: 042
     Dates: start: 20080112, end: 20080113

REACTIONS (2)
  - INFUSION SITE ERYTHEMA [None]
  - INFUSION SITE PAIN [None]
